FAERS Safety Report 8815632 (Version 2)
Quarter: 2012Q4

REPORT INFORMATION
  Report Type: 
  Country: FR (occurrence: FR)
  Receive Date: 20120928
  Receipt Date: 20121231
  Transmission Date: 20130627
  Serious: Yes (Other)
  Sender: FDA-Public Use
  Company Number: FR-UCBSA-067508

PATIENT
  Age: 65 Year
  Sex: Female

DRUGS (4)
  1. KEPPRA [Suspect]
     Indication: EPILEPSY
     Dosage: DAILY DOSE: 1.5 MG; DOSE STRENGTH 500 MG
     Route: 048
     Dates: start: 2005
  2. KEPPRA [Suspect]
     Indication: EPILEPSY
     Dosage: DAILY DOSE 1 GRAM
     Route: 048
  3. LAMICTAL [Suspect]
     Indication: EPILEPSY
     Route: 048
     Dates: start: 2000
  4. RIVORTIL [Suspect]
     Indication: EPILEPSY
     Dosage: DAILY DOSE-2 MG
     Route: 048
     Dates: start: 1975

REACTIONS (1)
  - Upper respiratory tract infection [Recovered/Resolved]
